FAERS Safety Report 20763539 (Version 1)
Quarter: 2022Q2

REPORT INFORMATION
  Report Type: Spontaneous
  Country: US (occurrence: US)
  Receive Date: 20220428
  Receipt Date: 20220428
  Transmission Date: 20220721
  Serious: No
  Sender: FDA-Public Use
  Company Number: US-ALXN-A202204998

PATIENT
  Age: 37 Year
  Sex: Female
  Weight: 95.7 kg

DRUGS (1)
  1. ULTOMIRIS [Suspect]
     Active Substance: RAVULIZUMAB-CWVZ
     Indication: Paroxysmal nocturnal haemoglobinuria
     Dosage: 3300 MG Q56DAYS
     Route: 042
     Dates: start: 20220211

REACTIONS (2)
  - Product preparation error [Unknown]
  - Anxiety [Unknown]

NARRATIVE: CASE EVENT DATE: 20220422
